FAERS Safety Report 15118823 (Version 1)
Quarter: 2018Q3

REPORT INFORMATION
  Report Type: Spontaneous
  Country: DE (occurrence: DE)
  Receive Date: 20180709
  Receipt Date: 20180709
  Transmission Date: 20181010
  Serious: Yes (Life-Threatening, Hospitalization, Other)
  Sender: FDA-Public Use
  Company Number: DE-STRIDES ARCOLAB LIMITED-2018SP005658

PATIENT

DRUGS (1)
  1. TACROLIMUS. [Suspect]
     Active Substance: TACROLIMUS
     Indication: LIVER TRANSPLANT
     Dosage: UNK
     Route: 065
     Dates: start: 201603

REACTIONS (13)
  - Abdominal distension [Recovered/Resolved]
  - Ascites [Recovered/Resolved]
  - Leukocytosis [Recovered/Resolved]
  - Cachexia [Recovered/Resolved]
  - Clostridium difficile colitis [Recovered/Resolved]
  - Pneumonia [Recovered/Resolved]
  - Oedema mucosal [Recovered/Resolved]
  - Acute kidney injury [Recovered/Resolved]
  - General physical health deterioration [Recovered/Resolved]
  - Transplant rejection [Unknown]
  - Diarrhoea [Recovered/Resolved]
  - Mucosal haemorrhage [Recovered/Resolved]
  - Abdominal pain [Recovered/Resolved]

NARRATIVE: CASE EVENT DATE: 2016
